FAERS Safety Report 17410858 (Version 1)
Quarter: 2020Q1

REPORT INFORMATION
  Report Type: Spontaneous
  Country: US (occurrence: US)
  Receive Date: 20200212
  Receipt Date: 20200212
  Transmission Date: 20200409
  Serious: No
  Sender: FDA-Public Use
  Company Number: US-GILEAD-2020-0450791

PATIENT
  Age: 49 Year
  Sex: Male

DRUGS (3)
  1. VITAMIN B12 [VITAMIN B12 NOS] [Concomitant]
     Active Substance: CYANOCOBALAMIN
  2. VITAMIN D3 [Concomitant]
     Active Substance: CHOLECALCIFEROL
  3. VEMLIDY [Suspect]
     Active Substance: TENOFOVIR ALAFENAMIDE FUMARATE
     Indication: ACUTE HEPATITIS B
     Dosage: 25 MG, QD
     Route: 048

REACTIONS (2)
  - Tongue disorder [Not Recovered/Not Resolved]
  - Tongue dry [Not Recovered/Not Resolved]

NARRATIVE: CASE EVENT DATE: 20191201
